FAERS Safety Report 20091119 (Version 1)
Quarter: 2021Q4

REPORT INFORMATION
  Report Type: Spontaneous
  Country: CA (occurrence: CA)
  Receive Date: 20211119
  Receipt Date: 20211119
  Transmission Date: 20220303
  Serious: Yes (Other)
  Sender: FDA-Public Use
  Company Number: CA-PFIZER INC-202101564352

PATIENT
  Sex: Female

DRUGS (1)
  1. EFFEXOR [Suspect]
     Active Substance: VENLAFAXINE HYDROCHLORIDE
     Dosage: UNK

REACTIONS (7)
  - Balance disorder [Recovered/Resolved]
  - Chromaturia [Recovered/Resolved]
  - Dizziness [Recovered/Resolved]
  - Haematochezia [Recovered/Resolved]
  - Head injury [Recovered/Resolved]
  - Migraine [Recovered/Resolved]
  - Suicidal ideation [Recovered/Resolved]
